FAERS Safety Report 15467584 (Version 2)
Quarter: 2018Q4

REPORT INFORMATION
  Report Type: Spontaneous
  Country: US (occurrence: US)
  Receive Date: 20181005
  Receipt Date: 20181116
  Transmission Date: 20190204
  Serious: No
  Sender: FDA-Public Use
  Company Number: US-ASTRAZENECA-2018SF15276

PATIENT
  Sex: Male

DRUGS (1)
  1. BYDUREON [Suspect]
     Active Substance: EXENATIDE
     Route: 058
     Dates: start: 2016

REACTIONS (5)
  - Wrong technique in product usage process [Recovered/Resolved]
  - Injection site mass [Unknown]
  - Device issue [Unknown]
  - Injection site swelling [Unknown]
  - Injection site injury [Unknown]

NARRATIVE: CASE EVENT DATE: 201808
